FAERS Safety Report 16540051 (Version 1)
Quarter: 2019Q3

REPORT INFORMATION
  Report Type: Spontaneous
  Country: CA (occurrence: US)
  Receive Date: 20190706
  Receipt Date: 20190706
  Transmission Date: 20191004
  Serious: No
  Sender: FDA-Public Use
  Company Number: None

PATIENT
  Age: 34 Year
  Sex: Female
  Weight: 63.96 kg

DRUGS (1)
  1. KYLEENA [Suspect]
     Active Substance: LEVONORGESTREL

REACTIONS (7)
  - Weight increased [None]
  - Device dislocation [None]
  - Dyspareunia [None]
  - Pain [None]
  - Uterine pain [None]
  - Uterine perforation [None]
  - Haemorrhage [None]

NARRATIVE: CASE EVENT DATE: 20190307
